FAERS Safety Report 5669900-9 (Version None)
Quarter: 2008Q1

REPORT INFORMATION
  Report Type: 
  Country: None (occurrence: None)
  Receive Date: 20080317
  Receipt Date: 20080305
  Transmission Date: 20080703
  Serious: Yes (Other)
  Sender: FDA-Public Use
  Company Number: US-PFIZER INC-2008021326

PATIENT
  Sex: Female
  Weight: 70.454 kg

DRUGS (2)
  1. DILANTIN [Suspect]
     Indication: CONVULSION
  2. INSULIN [Concomitant]

REACTIONS (2)
  - CONVULSION [None]
  - DIABETES MELLITUS [None]
